FAERS Safety Report 4994929-3 (Version None)
Quarter: 2006Q2

REPORT INFORMATION
  Report Type: 
  Country: None (occurrence: None)
  Receive Date: 20060508
  Receipt Date: 20060426
  Transmission Date: 20061013
  Serious: Yes (Hospitalization, Other)
  Sender: FDA-Public Use
  Company Number: PHEH2006US05473

PATIENT
  Age: 86 Year
  Sex: Female

DRUGS (5)
  1. MIACALCIN [Suspect]
     Indication: OSTEOPOROSIS
     Dosage: 200 IU, QD
     Dates: start: 19900101
  2. PREMARIN [Concomitant]
     Indication: HORMONE REPLACEMENT THERAPY
  3. CATAPRES-TTS-1 [Concomitant]
     Indication: HYPERTENSION
  4. SYNTHROID [Concomitant]
     Indication: THYROID DISORDER
  5. VIOXX [Suspect]

REACTIONS (6)
  - CEREBROVASCULAR ACCIDENT [None]
  - CYSTITIS [None]
  - HYPOAESTHESIA [None]
  - PNEUMONIA [None]
  - TRANSIENT ISCHAEMIC ATTACK [None]
  - VASCULAR DEMENTIA [None]
